FAERS Safety Report 18258917 (Version 1)
Quarter: 2020Q3

REPORT INFORMATION
  Report Type: Report from Study
  Country: US (occurrence: US)
  Receive Date: 20200911
  Receipt Date: 20200911
  Transmission Date: 20201103
  Serious: Yes (Death, Hospitalization, Other)
  Sender: FDA-Public Use
  Company Number: US-JNJFOC-A-US2018-174168

PATIENT
  Age: 70 Year
  Sex: Female
  Weight: 74 kg

DRUGS (5)
  1. SILDENAFIL. [Concomitant]
     Active Substance: SILDENAFIL
  2. OXYGEN. [Concomitant]
     Active Substance: OXYGEN
  3. SILDENAFIL CITRATE. [Concomitant]
     Active Substance: SILDENAFIL CITRATE
  4. OPSUMIT [Suspect]
     Active Substance: MACITENTAN
     Indication: PULMONARY HYPERTENSION
     Dosage: 10 MG, QPM
     Route: 048
     Dates: start: 201707
  5. OPSUMIT [Suspect]
     Active Substance: MACITENTAN
     Dosage: 10 MG, QD
     Route: 048
     Dates: start: 20170815

REACTIONS (9)
  - Death [Fatal]
  - Hypoxia [Recovered/Resolved]
  - Cardiac failure congestive [Unknown]
  - Loss of consciousness [Unknown]
  - Ear infection [Recovered/Resolved]
  - Pleural effusion [Unknown]
  - Urinary tract infection [Unknown]
  - Oxygen saturation decreased [Recovered/Resolved]
  - Pneumonia [Recovered/Resolved]

NARRATIVE: CASE EVENT DATE: 20180608
